FAERS Safety Report 24883369 (Version 1)
Quarter: 2025Q1

REPORT INFORMATION
  Report Type: Spontaneous
  Country: US (occurrence: None)
  Receive Date: 20250123
  Receipt Date: 20250123
  Transmission Date: 20250409
  Serious: Yes (Other)
  Sender: FDA-CTU
  Company Number: None

PATIENT
  Age: 49 Year

DRUGS (4)
  1. MOUNJARO [Suspect]
     Active Substance: TIRZEPATIDE
     Indication: Diabetes mellitus
     Route: 058
  2. CHLORTHALIDONE [Concomitant]
     Active Substance: CHLORTHALIDONE
     Dates: start: 202411
  3. OLMESARTAN [Concomitant]
     Active Substance: OLMESARTAN
     Dates: start: 202411
  4. AMLODIPINE [Concomitant]
     Active Substance: AMLODIPINE BESYLATE
     Dates: start: 202411

REACTIONS (3)
  - Injection site swelling [None]
  - Injection site erythema [None]
  - Wrong technique in product usage process [None]

NARRATIVE: CASE EVENT DATE: 20241115
